FAERS Safety Report 4536961-X (Version None)
Quarter: 2004Q4

REPORT INFORMATION
  Report Type: 
  Country: None (occurrence: None)
  Receive Date: 20041220
  Receipt Date: 20041209
  Transmission Date: 20050328
  Serious: Yes (Other)
  Sender: FDA-Public Use
  Company Number: S04-GER-08237-01

PATIENT
  Age: 33 Year
  Sex: Male

DRUGS (4)
  1. CIPRAMIL (CITALOPRAM) [Suspect]
     Indication: DEPRESSION
     Dosage: 40 MG QD PO
     Route: 048
     Dates: start: 20020101, end: 20040701
  2. CIPRAMIL (CITALOPRAM) [Suspect]
     Indication: PANIC DISORDER
     Dosage: 40 MG QD PO
     Route: 048
     Dates: start: 20020101, end: 20040701
  3. CIPRALEX (ESCITALOPRAM) [Concomitant]
  4. MIRTAZAPINE [Concomitant]

REACTIONS (3)
  - COLITIS ULCERATIVE [None]
  - HAEMOGLOBIN DECREASED [None]
  - PLATELET COUNT INCREASED [None]
